FAERS Safety Report 9395728 (Version 2)
Quarter: 2013Q3

REPORT INFORMATION
  Report Type: Spontaneous
  Country: ZA (occurrence: ZA)
  Receive Date: 20130711
  Receipt Date: 20130718
  Transmission Date: 20140515
  Serious: Yes (Hospitalization)
  Sender: FDA-Public Use
  Company Number: ZA-BAYER-2013-076334

PATIENT
  Age: 0 Day
  Sex: Female
  Weight: 1.8 kg

DRUGS (2)
  1. MIRENA [Suspect]
     Dosage: UNK UNK, CONT
     Route: 064
  2. MIRENA [Suspect]
     Dosage: UNK UNK, CONT
     Route: 064

REACTIONS (6)
  - Premature baby [None]
  - Low birth weight baby [None]
  - Neonatal respiratory distress syndrome [None]
  - Jaundice neonatal [None]
  - Amniotic cavity infection [None]
  - Neonatal infection [None]
